FAERS Safety Report 17073153 (Version 1)
Quarter: 2019Q4

REPORT INFORMATION
  Report Type: Report from Study
  Country: None (occurrence: FR)
  Receive Date: 20191125
  Receipt Date: 20191125
  Transmission Date: 20200122
  Serious: Yes (Death, Hospitalization)
  Sender: FDA-Public Use
  Company Number: FR-ABBVIE-19K-056-3014035-00

PATIENT
  Age: 68 Year
  Sex: Female

DRUGS (1)
  1. DUODOPA [Suspect]
     Active Substance: CARBIDOPA\LEVODOPA
     Indication: PRODUCT USED FOR UNKNOWN INDICATION
     Dosage: DRUG START DATE : WEEK OF 25 FEB 2015?20 MG/ML 5 MG/ML
     Route: 050
     Dates: start: 201502

REACTIONS (2)
  - General physical condition abnormal [Fatal]
  - Renal failure [Fatal]
